FAERS Safety Report 6711226-6 (Version None)
Quarter: 2010Q2

REPORT INFORMATION
  Report Type: 
  Country: None (occurrence: None)
  Receive Date: 20100505
  Receipt Date: 20100429
  Transmission Date: 20101027
  Serious: Yes (Death)
  Sender: FDA-Public Use
  Company Number: US-CELGENEUS-028-21880-10040052

PATIENT
  Sex: Male

DRUGS (3)
  1. REVLIMID [Suspect]
     Indication: MULTIPLE MYELOMA
     Route: 048
     Dates: start: 20091007
  2. REVLIMID [Suspect]
     Route: 048
     Dates: start: 20090914
  3. REVLIMID [Suspect]
     Route: 048
     Dates: end: 20100106

REACTIONS (2)
  - MULTIPLE MYELOMA [None]
  - PULMONARY EMBOLISM [None]
